FAERS Safety Report 9758475 (Version 1)
Quarter: 2013Q4

REPORT INFORMATION
  Report Type: Spontaneous
  Country: US (occurrence: None)
  Receive Date: 20131216
  Receipt Date: 20131216
  Transmission Date: 20140711
  Serious: Yes (Death, Other)
  Sender: FDA-Public Use
  Company Number: CABO-13002374

PATIENT
  Age: 50 Year
  Sex: Male
  Weight: 76 kg

DRUGS (1)
  1. COMETRIQ (CABOZANTINIB) [Suspect]
     Indication: THYROID CANCER
     Dosage: 60 MG, QD. ORAL?60 MG, QOD

REACTIONS (12)
  - Malignant neoplasm progression [None]
  - Palmar-plantar erythrodysaesthesia syndrome [None]
  - Hypersomnia [None]
  - Sleep disorder [None]
  - Blister [None]
  - Dyspnoea [None]
  - Headache [None]
  - Oropharyngeal pain [None]
  - Diarrhoea [None]
  - Rash [None]
  - Dysphonia [None]
  - Stomatitis [None]
